FAERS Safety Report 24076451 (Version 3)
Quarter: 2025Q1

REPORT INFORMATION
  Report Type: Spontaneous
  Country: US (occurrence: US)
  Receive Date: 20240711
  Receipt Date: 20250218
  Transmission Date: 20250408
  Serious: No
  Sender: LUPIN
  Company Number: US-LUPIN PHARMACEUTICALS INC.-2024-05922

PATIENT

DRUGS (2)
  1. BUPROPION HYDROCHLORIDE [Suspect]
     Active Substance: BUPROPION HYDROCHLORIDE
     Indication: Attention deficit hyperactivity disorder
     Route: 065
  2. BUPROPION HYDROCHLORIDE [Suspect]
     Active Substance: BUPROPION HYDROCHLORIDE
     Indication: Fatigue

REACTIONS (2)
  - Therapeutic product effect variable [Unknown]
  - Off label use [Unknown]
